FAERS Safety Report 7155974-5 (Version None)
Quarter: 2010Q4

REPORT INFORMATION
  Report Type: 
  Country: None (occurrence: None)
  Receive Date: 20101214
  Receipt Date: 20101206
  Transmission Date: 20110411
  Serious: Yes (Death, Hospitalization)
  Sender: FDA-Public Use
  Company Number: DE-JNJFOC-20101204139

PATIENT
  Sex: Male
  Weight: 74.84 kg

DRUGS (15)
  1. PALEXIA RETARD [Suspect]
     Indication: PAIN
     Route: 048
  2. PALEXIA RETARD [Suspect]
     Route: 048
  3. RAMIPRIL [Concomitant]
     Indication: PRODUCT USED FOR UNKNOWN INDICATION
  4. PANTOZOL [Concomitant]
     Indication: PRODUCT USED FOR UNKNOWN INDICATION
  5. CARBABETA [Concomitant]
     Indication: PRODUCT USED FOR UNKNOWN INDICATION
  6. CALCIUM + D3 [Concomitant]
     Indication: PRODUCT USED FOR UNKNOWN INDICATION
  7. DICLOFENAC SODIUM [Concomitant]
     Indication: PRODUCT USED FOR UNKNOWN INDICATION
  8. NORMALIP PRO [Concomitant]
     Indication: PRODUCT USED FOR UNKNOWN INDICATION
  9. ACTONEL EINMAL WOECHENTLICH [Concomitant]
     Indication: PRODUCT USED FOR UNKNOWN INDICATION
  10. TAVOR [Concomitant]
     Indication: PRODUCT USED FOR UNKNOWN INDICATION
  11. MOVICOL [Concomitant]
     Indication: PRODUCT USED FOR UNKNOWN INDICATION
  12. NOVALGIN [Concomitant]
     Indication: PRODUCT USED FOR UNKNOWN INDICATION
  13. MELNEURIN [Concomitant]
     Indication: PRODUCT USED FOR UNKNOWN INDICATION
  14. FERROUS SULFATE TAB [Concomitant]
     Indication: PRODUCT USED FOR UNKNOWN INDICATION
  15. FRAXIPARIN [Concomitant]
     Indication: PRODUCT USED FOR UNKNOWN INDICATION

REACTIONS (2)
  - DIARRHOEA [None]
  - SEPSIS [None]
